FAERS Safety Report 10761438 (Version 1)
Quarter: 2015Q1

REPORT INFORMATION
  Report Type: Spontaneous
  Country: US (occurrence: None)
  Receive Date: 20150203
  Receipt Date: 20150203
  Transmission Date: 20150721
  Serious: Yes (Death, Life-Threatening, Hospitalization)
  Sender: FDA-Public Use
  Company Number: None

PATIENT
  Age: 67 Year
  Sex: Male
  Weight: 101.2 kg

DRUGS (1)
  1. AMIODARONE [Suspect]
     Active Substance: AMIODARONE
     Indication: VENTRICULAR TACHYCARDIA
     Dosage: 400 MG, EVERY DAY, PO
     Route: 048
     Dates: start: 20111104, end: 20141124

REACTIONS (8)
  - Unresponsive to stimuli [None]
  - Acute respiratory distress syndrome [None]
  - Dialysis [None]
  - Cardiogenic shock [None]
  - Pulmonary toxicity [None]
  - Respiratory failure [None]
  - Pulmonary oedema [None]
  - Pulmonary alveolar haemorrhage [None]

NARRATIVE: CASE EVENT DATE: 20141124
